FAERS Safety Report 8776231 (Version 1)
Quarter: 2012Q4

REPORT INFORMATION
  Report Type: 
  Country: NO (occurrence: NO)
  Receive Date: 20120910
  Receipt Date: 20120910
  Transmission Date: 20130627
  Serious: Yes (Other)
  Sender: FDA-Public Use
  Company Number: NO-BAYER-2012-084257

PATIENT
  Age: 56 Year
  Sex: Female

DRUGS (3)
  1. MIRENA [Suspect]
     Indication: OOPHORECTOMY
     Dosage: 20 mcg/24hr, CONT
     Route: 015
     Dates: start: 200901, end: 20120808
  2. MIRENA [Suspect]
     Indication: UTERINE CERVIX STENOSIS
     Dosage: 20 mcg/24hr, CONT
     Dates: start: 20120808, end: 20120808
  3. ESTRADOT [Concomitant]

REACTIONS (5)
  - Cervical dysplasia [None]
  - Vaginal haemorrhage [None]
  - Post procedural haemorrhage [None]
  - Device difficult to use [None]
  - Uterine cervix stenosis [None]
